FAERS Safety Report 16913274 (Version 2)
Quarter: 2019Q4

REPORT INFORMATION
  Report Type: Spontaneous
  Country: US (occurrence: US)
  Receive Date: 20191014
  Receipt Date: 20191213
  Transmission Date: 20200122
  Serious: No
  Sender: FDA-Public Use
  Company Number: US-ASTRAZENECA-2019SF35067

PATIENT
  Age: 30520 Day
  Sex: Male
  Weight: 84.4 kg

DRUGS (1)
  1. BEVESPI AEROSPHERE [Suspect]
     Active Substance: FORMOTEROL FUMARATE\GLYCOPYRROLATE
     Indication: COUGH
     Dosage: 9 MCGM/ 4.8 MCGM 2 PUFFS TWICE A DAY
     Route: 055
     Dates: start: 2019

REACTIONS (5)
  - Drug ineffective [Unknown]
  - Productive cough [Unknown]
  - Cough [Unknown]
  - Product dose omission [Unknown]
  - Drug delivery system malfunction [Unknown]

NARRATIVE: CASE EVENT DATE: 20190909
